FAERS Safety Report 19501438 (Version 1)
Quarter: 2021Q3

REPORT INFORMATION
  Report Type: Spontaneous
  Country: DE (occurrence: DE)
  Receive Date: 20210707
  Receipt Date: 20210707
  Transmission Date: 20211014
  Serious: Yes (Hospitalization)
  Sender: FDA-Public Use
  Company Number: DE-TEVA-2021-DE-1929911

PATIENT
  Age: 60 Year
  Sex: Male

DRUGS (4)
  1. HEPARIN [Suspect]
     Active Substance: HEPARIN SODIUM
     Dosage: FROM AMBULANCE
  2. RAMIPRIL/AMLODIPIN [Concomitant]
     Dosage: 1 DOSAGE FORMS DAILY; 5 | 5 MG, 1?0?0?0
     Route: 048
  3. METOPROLOL. [Suspect]
     Active Substance: METOPROLOL
     Dosage: FROM AMBULANCE
  4. ACETYLSALICYLSAEURE [Suspect]
     Active Substance: ASPIRIN
     Dosage: FROM AMBULANCE

REACTIONS (5)
  - Hypertensive crisis [Unknown]
  - Hypersensitivity [Unknown]
  - Dyspnoea [Unknown]
  - Dizziness [Unknown]
  - Erythema [Unknown]
